FAERS Safety Report 17988345 (Version 1)
Quarter: 2020Q3

REPORT INFORMATION
  Report Type: Spontaneous
  Country: CA (occurrence: CA)
  Receive Date: 20200707
  Receipt Date: 20200707
  Transmission Date: 20201103
  Serious: Yes (Hospitalization)
  Sender: FDA-Public Use
  Company Number: CA-TEVA-2020-CA-1797756

PATIENT
  Age: 19 Year
  Sex: Male

DRUGS (1)
  1. TEVA?FENTANYL [Suspect]
     Active Substance: FENTANYL

REACTIONS (3)
  - Prescription drug used without a prescription [Unknown]
  - Overdose [Unknown]
  - Wrong technique in product usage process [Unknown]
